FAERS Safety Report 5806175-1 (Version None)
Quarter: 2008Q3

REPORT INFORMATION
  Report Type: 
  Country: None (occurrence: None)
  Receive Date: 20080709
  Receipt Date: 20080709
  Transmission Date: 20090109
  Serious: Yes (Hospitalization)
  Sender: FDA-Public Use
  Company Number: None

PATIENT
  Age: 54 Year
  Sex: Male
  Weight: 95.7 kg

DRUGS (1)
  1. ETODOLAC [Suspect]
     Indication: PAIN
     Dosage: 300 MG TID PO
     Route: 048
     Dates: start: 20070629, end: 20080109

REACTIONS (7)
  - ABDOMINAL PAIN [None]
  - ALCOHOL USE [None]
  - ANAEMIA [None]
  - DIZZINESS [None]
  - DIZZINESS POSTURAL [None]
  - GASTROENTERITIS VIRAL [None]
  - SYNCOPE [None]
